FAERS Safety Report 5580194-5 (Version None)
Quarter: 2007Q4

REPORT INFORMATION
  Report Type: 
  Country: None (occurrence: None)
  Receive Date: 20071227
  Receipt Date: 20071227
  Transmission Date: 20080405
  Serious: Yes (Life-Threatening)
  Sender: FDA-Public Use
  Company Number: None

PATIENT
  Age: 68 Year
  Sex: Female
  Weight: 89.8122 kg

DRUGS (7)
  1. SCOPOLAMINE [Suspect]
     Indication: MOTION SICKNESS
     Dosage: DAILY CUTANEOUS
     Route: 003
     Dates: start: 20070501, end: 20070521
  2. CLONAZEPAM [Concomitant]
  3. ATENOLOL [Concomitant]
  4. ASPIRIN [Concomitant]
  5. VYTORIN [Concomitant]
  6. ACTONEL [Concomitant]
  7. OMEGA 3 [Concomitant]

REACTIONS (2)
  - BLOOD PRESSURE FLUCTUATION [None]
  - HAEMODYNAMIC INSTABILITY [None]
